FAERS Safety Report 4423585-8 (Version None)
Quarter: 2004Q3

REPORT INFORMATION
  Report Type: 
  Country: None (occurrence: None)
  Receive Date: 20040719
  Receipt Date: 20040430
  Transmission Date: 20050211
  Serious: Yes (Death)
  Sender: FDA-Public Use
  Company Number: M04-INT-075

PATIENT
  Age: 78 Year
  Sex: Male
  Weight: 94 kg

DRUGS (5)
  1. INTEGRILIN [Suspect]
     Indication: CORONARY ANGIOPLASTY
     Dosage: 2 + 180 MCG/KG X 2, IV BOLUS
     Route: 040
     Dates: start: 20040201, end: 20040229
  2. INTEGRILIN [Suspect]
     Indication: CORONARY ANGIOPLASTY
     Dosage: 2 + 180 MCG/KG X 2, IV BOLUS
     Route: 040
     Dates: start: 20040427, end: 20040427
  3. INTEGRILIN [Suspect]
     Indication: CORONARY ANGIOPLASTY
     Dosage: 2 + 180 MCG/KG X 2, IV BOLUS
     Route: 040
     Dates: start: 20040427, end: 20040427
  4. ACETYLSALICYLIC ACID [Concomitant]
  5. PLAVIX [Concomitant]

REACTIONS (2)
  - HAEMORRHAGE INTRACRANIAL [None]
  - THROMBOCYTOPENIA [None]
